FAERS Safety Report 21722419 (Version 6)
Quarter: 2023Q2

REPORT INFORMATION
  Report Type: Spontaneous
  Country: US (occurrence: US)
  Receive Date: 20221213
  Receipt Date: 20230522
  Transmission Date: 20230721
  Serious: Yes (Hospitalization, Other)
  Sender: FDA-Public Use
  Company Number: US-PFIZER INC-202201362167

PATIENT
  Age: 87 Year
  Sex: Female
  Weight: 81.64 kg

DRUGS (2)
  1. VYNDAMAX [Suspect]
     Active Substance: TAFAMIDIS
     Indication: Cardiac amyloidosis
     Dosage: 61 MG, 1X/DAY
     Route: 048
     Dates: start: 20210616
  2. VYNDAMAX [Suspect]
     Active Substance: TAFAMIDIS
     Indication: Cardiac failure congestive
     Dosage: 61 MG, 1X/DAY

REACTIONS (9)
  - COVID-19 [Recovering/Resolving]
  - Oxygen saturation decreased [Unknown]
  - Heart rate irregular [Unknown]
  - Cardiac pacemaker replacement [Unknown]
  - Feeling abnormal [Unknown]
  - Dyspnoea [Unknown]
  - Urinary tract infection [Unknown]
  - Rash macular [Unknown]
  - Decreased appetite [Unknown]

NARRATIVE: CASE EVENT DATE: 20220901
